FAERS Safety Report 5407072-6 (Version None)
Quarter: 2007Q3

REPORT INFORMATION
  Report Type: 
  Country: None (occurrence: None)
  Receive Date: 20070802
  Receipt Date: 20070723
  Transmission Date: 20080115
  Serious: Yes (Life-Threatening, Hospitalization, Other)
  Sender: FDA-Public Use
  Company Number: 07H-167-0312918-00

PATIENT
  Age: 41 Year
  Sex: Female

DRUGS (8)
  1. PROPOFOL [Suspect]
     Indication: DRUG USE FOR UNKNOWN INDICATION
     Dosage: 200 MG, NOT REPORTED
     Dates: start: 20070608
  2. DEXAMETHASONE TAB [Suspect]
     Indication: DRUG USE FOR UNKNOWN INDICATION
     Dosage: 4 MG, NOT REPORTED
     Dates: start: 20070608
  3. FENTANYL [Suspect]
     Indication: DRUG USE FOR UNKNOWN INDICATION
     Dosage: 100 MCG, NOT REPORTED
     Dates: start: 20070608
  4. MIDAZOLAM HCL [Suspect]
     Indication: DRUG USE FOR UNKNOWN INDICATION
     Dosage: 2 MG, NOT REPORTED
     Dates: start: 20070608
  5. SUXAMETHONIUM (SUXAMETHONIUM) [Suspect]
     Indication: DRUG USE FOR UNKNOWN INDICATION
     Dosage: 100 MG, NOT REPORTED, INTRAVENOUS
     Route: 042
     Dates: start: 20070608
  6. OXYGEN (OXYGEN) [Concomitant]
  7. NITROUS OXIDE (NITROUS OXIDE) [Concomitant]
  8. DESFLURANE (DESFLURANE) [Concomitant]

REACTIONS (3)
  - ANAPHYLACTIC REACTION [None]
  - CIRCULATORY COLLAPSE [None]
  - ERYTHEMA [None]
